FAERS Safety Report 16529113 (Version 4)
Quarter: 2019Q4

REPORT INFORMATION
  Report Type: Spontaneous
  Country: US (occurrence: US)
  Receive Date: 20190704
  Receipt Date: 20191205
  Transmission Date: 20200122
  Serious: No
  Sender: FDA-Public Use
  Company Number: US-GW PHARMA-201905USGW1520

PATIENT

DRUGS (3)
  1. EPIDIOLEX [Suspect]
     Active Substance: CANNABIDIOL
     Dosage: 15.87 MG/KG, 180 MILLIGRAM, BID
     Dates: start: 2019, end: 2019
  2. EPIDIOLEX [Suspect]
     Active Substance: CANNABIDIOL
     Indication: LENNOX-GASTAUT SYNDROME
     Dosage: 5.29 MG/KG, 60 MILLIGRAM, BID
     Dates: start: 201901, end: 2019
  3. EPIDIOLEX [Suspect]
     Active Substance: CANNABIDIOL
     Dosage: 17.62 MG/KG, 200 MILLIGRAM, BID
     Dates: start: 2019

REACTIONS (5)
  - Change in seizure presentation [Unknown]
  - Product use issue [Not Recovered/Not Resolved]
  - Sedation [Unknown]
  - Product administration error [Unknown]
  - Seizure [Unknown]

NARRATIVE: CASE EVENT DATE: 2019
